FAERS Safety Report 10178172 (Version 1)
Quarter: 2014Q2

REPORT INFORMATION
  Report Type: Spontaneous
  Country: HR (occurrence: HR)
  Receive Date: 20140519
  Receipt Date: 20140519
  Transmission Date: 20141212
  Serious: Yes (Hospitalization, Other)
  Sender: FDA-Public Use
  Company Number: HR-JNJFOC-20140503528

PATIENT
  Age: 35 Year
  Sex: Male

DRUGS (3)
  1. RISPERIDONE [Suspect]
     Indication: SCHIZOPHRENIA
     Route: 048
     Dates: end: 201310
  2. RISPERIDONE [Suspect]
     Indication: SCHIZOPHRENIA, RESIDUAL TYPE
     Route: 048
     Dates: end: 201310
  3. SOLIAN [Suspect]
     Indication: PRODUCT USED FOR UNKNOWN INDICATION
     Route: 065

REACTIONS (10)
  - Psychotic disorder [Recovered/Resolved]
  - Affective disorder [Recovered/Resolved]
  - Anxiety [Recovered/Resolved]
  - Depression [Recovered/Resolved]
  - Decreased appetite [Recovered/Resolved]
  - Weight decreased [Recovered/Resolved]
  - Fatigue [Recovered/Resolved]
  - Poor personal hygiene [Recovered/Resolved]
  - Treatment noncompliance [Recovered/Resolved]
  - Unevaluable event [Recovered/Resolved]
